FAERS Safety Report 9806075 (Version 1)
Quarter: 2014Q1

REPORT INFORMATION
  Report Type: Spontaneous
  Country: US (occurrence: US)
  Receive Date: 20140109
  Receipt Date: 20140109
  Transmission Date: 20141002
  Serious: No
  Sender: FDA-Public Use
  Company Number: US-GILEAD-2014-0091654

PATIENT
  Age: 47 Year
  Sex: Female

DRUGS (18)
  1. LETAIRIS [Suspect]
     Indication: PULMONARY ARTERIAL HYPERTENSION
     Dosage: 2.5 MG, QD
     Route: 048
     Dates: start: 20120120
  2. TYVASO [Concomitant]
  3. ADCIRCA [Concomitant]
  4. CALCIUM [Concomitant]
  5. MULTIVITAMINS [Concomitant]
  6. POTASSIUM CHLORIDE [Concomitant]
  7. TOPAMAX [Concomitant]
  8. LEVOTHYROXINE [Concomitant]
  9. NEURONTIN [Concomitant]
  10. NORVASC [Concomitant]
  11. WARFARIN SODIUM [Concomitant]
  12. LAMICTAL [Concomitant]
  13. SEROQUEL [Concomitant]
  14. SPIRONOLACTONE [Concomitant]
  15. EFFEXOR [Concomitant]
  16. PROTONIX [Concomitant]
  17. LASIX                              /00032601/ [Concomitant]
  18. CARAFATE [Concomitant]

REACTIONS (1)
  - Dyspnoea [Not Recovered/Not Resolved]
